APPROVED DRUG PRODUCT: NIFEDIPINE
Active Ingredient: NIFEDIPINE
Strength: 60MG
Dosage Form/Route: TABLET, EXTENDED RELEASE;ORAL
Application: A210012 | Product #002 | TE Code: AB2
Applicant: ZYDUS PHARMACEUTICALS USA INC
Approved: Dec 19, 2017 | RLD: No | RS: No | Type: RX